FAERS Safety Report 14508579 (Version 2)
Quarter: 2018Q3

REPORT INFORMATION
  Report Type: Report from Study
  Country: None (occurrence: US)
  Receive Date: 20180209
  Receipt Date: 20180814
  Transmission Date: 20181010
  Serious: Yes (Other)
  Sender: FDA-Public Use
  Company Number: US-ABBVIE-18K-163-2249297-00

PATIENT
  Age: 50 Year
  Sex: Female

DRUGS (2)
  1. IMURAN [Suspect]
     Active Substance: AZATHIOPRINE
     Indication: PRODUCT USED FOR UNKNOWN INDICATION
     Route: 065
  2. HUMIRA [Suspect]
     Active Substance: ADALIMUMAB
     Indication: CROHN^S DISEASE
     Route: 058
     Dates: start: 2006

REACTIONS (11)
  - Intentional product misuse [Unknown]
  - Intestinal resection [Recovered/Resolved]
  - Skin discolouration [Unknown]
  - Muscle spasms [Not Recovered/Not Resolved]
  - C-reactive protein increased [Not Recovered/Not Resolved]
  - Nausea [Not Recovered/Not Resolved]
  - Diarrhoea [Not Recovered/Not Resolved]
  - Hyperhidrosis [Unknown]
  - Abdominal pain [Not Recovered/Not Resolved]
  - Pyrexia [Unknown]
  - Tremor [Unknown]

NARRATIVE: CASE EVENT DATE: 2006
